FAERS Safety Report 8242855-9 (Version None)
Quarter: 2012Q1

REPORT INFORMATION
  Report Type: 
  Country: None (occurrence: None)
  Receive Date: 20120329
  Receipt Date: 20120320
  Transmission Date: 20120608
  Serious: Yes (Other)
  Sender: FDA-Public Use
  Company Number: AU-JNJFOC-20120310791

PATIENT
  Sex: Male

DRUGS (1)
  1. RISPERDAL [Suspect]
     Indication: PRODUCT USED FOR UNKNOWN INDICATION
     Route: 048

REACTIONS (7)
  - TREATMENT NONCOMPLIANCE [None]
  - PARANOIA [None]
  - AGGRESSION [None]
  - MENTAL IMPAIRMENT [None]
  - IRRITABILITY [None]
  - HOSTILITY [None]
  - DELUSION [None]
